FAERS Safety Report 7490164 (Version 1)
Quarter: 2020Q3

REPORT INFORMATION
  Report Type: Spontaneous
  Country: DE (occurrence: DE)
  Receive Date: 20100720
  Receipt Date: 20100720
  Transmission Date: 20201104
  Serious: Yes (Hospitalization, Other)
  Sender: FDA-Public Use
  Company Number: DE-PFIZER INC-2010087110

PATIENT
  Age: 71 Year
  Sex: Female
  Weight: 47 kg

DRUGS (2)
  1. IBANDRONIC ACID. [Suspect]
     Active Substance: IBANDRONIC ACID
     Dosage: SINGLE DOSE, EVERY 14 DAYS
     Dates: start: 20051129, end: 20100403
  2. AROMASIN [Suspect]
     Active Substance: EXEMESTANE
     Indication: BREAST CANCER FEMALE
     Dosage: UNK
     Route: 048
     Dates: end: 200707

REACTIONS (14)
  - Hyperthyroidism [Unknown]
  - Pancreatic failure [Unknown]
  - Asthenia [Not Recovered/Not Resolved]
  - Angina pectoris [Unknown]
  - Weight decreased [Not Recovered/Not Resolved]
  - Gastric haemorrhage [Unknown]
  - Visual impairment [Not Recovered/Not Resolved]
  - Hallucination [Unknown]
  - Fatigue [Not Recovered/Not Resolved]
  - Diarrhoea [Recovering/Resolving]
  - Abdominal pain upper [Unknown]
  - Iron deficiency [Unknown]
  - Headache [Not Recovered/Not Resolved]
  - Jaw disorder [Unknown]
